FAERS Safety Report 4877622-7 (Version None)
Quarter: 2006Q1

REPORT INFORMATION
  Report Type: 
  Country: None (occurrence: None)
  Receive Date: 20060109
  Receipt Date: 20060109
  Transmission Date: 20060701
  Serious: Yes (Life-Threatening, Hospitalization, Other)
  Sender: FDA-Public Use
  Company Number: None

PATIENT
  Sex: Male
  Weight: 72.5755 kg

DRUGS (5)
  1. GEODON [Suspect]
     Indication: DEPRESSION
     Dosage: PO
     Route: 048
     Dates: start: 20051212, end: 20051229
  2. GEODON [Suspect]
     Indication: PSYCHOTIC DISORDER
     Dosage: PO
     Route: 048
     Dates: start: 20051212, end: 20051229
  3. ZOLOFT [Suspect]
     Indication: PSYCHOTIC DISORDER
     Dosage: PO
     Route: 048
     Dates: start: 20051212, end: 20051229
  4. ZOLOFT [Suspect]
     Indication: SOCIAL PHOBIA
     Dosage: PO
     Route: 048
     Dates: start: 20051212, end: 20051229
  5. VITAMINS/PRIMATENE MIST [Concomitant]

REACTIONS (9)
  - DROOLING [None]
  - DYSPNOEA [None]
  - ECONOMIC PROBLEM [None]
  - FACIAL PAIN [None]
  - PARALYSIS [None]
  - SPEECH DISORDER [None]
  - STRESS [None]
  - TONGUE DISORDER [None]
  - TRISMUS [None]
